FAERS Safety Report 20072607 (Version 1)
Quarter: 2021Q4

REPORT INFORMATION
  Report Type: Spontaneous
  Country: US (occurrence: US)
  Receive Date: 20211116
  Receipt Date: 20211116
  Transmission Date: 20220303
  Serious: No
  Sender: FDA-Public Use
  Company Number: US-009507513-2111USA003756

PATIENT
  Sex: Female

DRUGS (1)
  1. CUBICIN [Suspect]
     Active Substance: DAPTOMYCIN
     Indication: Staphylococcal sepsis
     Dosage: 50 ML IV ONCE A DAY
     Route: 042
     Dates: start: 20211106

REACTIONS (1)
  - Illness [Unknown]

NARRATIVE: CASE EVENT DATE: 20211101
